FAERS Safety Report 7065404 (Version 16)
Quarter: 2013Q4

REPORT INFORMATION
  Report Type: Spontaneous
  Country: US (occurrence: US)
  Receive Date: 20090728
  Receipt Date: 20131219
  Transmission Date: 20140711
  Serious: Yes (Death, Hospitalization, Other)
  Sender: FDA-Public Use
  Company Number: PHEH2009US07564

PATIENT
  Age: 79 Year
  Sex: Male

DRUGS (6)
  1. AREDIA [Suspect]
     Dosage: 90 MG, QMO
     Route: 042
     Dates: start: 200002, end: 20011106
  2. ZOMETA [Suspect]
     Indication: PLASMA CELL MYELOMA
     Dosage: 4 MG, QMO
     Route: 042
     Dates: start: 20011106, end: 20041013
  3. CORTICOSTEROIDS [Concomitant]
  4. FLUCONAZOLE [Concomitant]
  5. ZOFRAN [Concomitant]
  6. THALIDOMIDE [Concomitant]

REACTIONS (73)
  - Chest pain [Unknown]
  - Coronary artery disease [Unknown]
  - Arteriosclerosis [Unknown]
  - Peripheral artery aneurysm [Unknown]
  - Haematuria [Unknown]
  - Ventricular extrasystoles [Unknown]
  - Bundle branch block right [Unknown]
  - Cataract [Unknown]
  - Hyalosis asteroid [Unknown]
  - Fall [Unknown]
  - Mouth haemorrhage [Unknown]
  - Insomnia [Unknown]
  - Dysuria [Unknown]
  - Pruritus [Unknown]
  - Osteopenia [Unknown]
  - Exostosis [Unknown]
  - Osteoarthritis [Unknown]
  - Vascular calcification [Unknown]
  - Pulmonary fibrosis [Unknown]
  - Back pain [Unknown]
  - Arthralgia [Unknown]
  - Pelvic pain [Unknown]
  - Intervertebral disc protrusion [Unknown]
  - Arthropathy [Unknown]
  - White matter lesion [Unknown]
  - Atrophy [Unknown]
  - Spondylolisthesis [Unknown]
  - Anaemia [Unknown]
  - Rosai-Dorfman syndrome [Unknown]
  - Osteomyelitis [Unknown]
  - Oral candidiasis [Unknown]
  - Swelling [Unknown]
  - Death [Fatal]
  - Epistaxis [Unknown]
  - Leukocytosis [Unknown]
  - Asthenia [Unknown]
  - Osteonecrosis of jaw [Unknown]
  - Injury [Unknown]
  - Pain [Unknown]
  - Anxiety [Unknown]
  - Gingival swelling [Unknown]
  - Exposed bone in jaw [Unknown]
  - Decreased interest [Unknown]
  - Pain in jaw [Unknown]
  - Dyspnoea exertional [Unknown]
  - Neuropathy peripheral [Recovering/Resolving]
  - Aortic aneurysm [Unknown]
  - Intervertebral disc degeneration [Unknown]
  - Thrombocytopenia [Unknown]
  - Axillary mass [Unknown]
  - Aortic calcification [Unknown]
  - Plasmacytosis [Unknown]
  - Marrow hyperplasia [Unknown]
  - Bladder cancer [Unknown]
  - Pollakiuria [Unknown]
  - Intervertebral disc space narrowing [Unknown]
  - Spinal column stenosis [Unknown]
  - Chronic obstructive pulmonary disease [Unknown]
  - Emphysema [Unknown]
  - Spinal osteoarthritis [Unknown]
  - Hyperkeratosis [Unknown]
  - Inflammation [Unknown]
  - Depression [Unknown]
  - Musculoskeletal stiffness [Unknown]
  - Hypotension [Unknown]
  - Corneal abrasion [Unknown]
  - Gastritis [Unknown]
  - Malaise [Unknown]
  - Oral pain [Unknown]
  - Malignant melanoma [Unknown]
  - Second primary malignancy [Unknown]
  - Confusional state [Unknown]
  - Haemoptysis [Unknown]
